FAERS Safety Report 10455461 (Version 1)
Quarter: 2014Q3

REPORT INFORMATION
  Report Type: Spontaneous
  Country: US (occurrence: None)
  Receive Date: 20140915
  Receipt Date: 20140915
  Transmission Date: 20150326
  Serious: Yes (Life-Threatening, Hospitalization, Disabling)
  Sender: FDA-Public Use
  Company Number: None

PATIENT
  Age: 78 Year
  Sex: Female
  Weight: 61 kg

DRUGS (16)
  1. CARBOPLATIN AUC-6 IV [Suspect]
     Active Substance: CARBOPLATIN
     Indication: BREAST CANCER
     Dosage: AUC= 6 DAY 1 INTRAVENOUS
     Route: 042
     Dates: start: 20140808, end: 20140905
  2. FERROUS SULFATE /HYDROCODONE-ACETAMINOPHEN [Concomitant]
  3. ASPIRIN (FOR ECOTRIN) [Concomitant]
  4. OSCAL 50 + D [Concomitant]
  5. METOPROLOL SUCCINATE (FOR TOPROL-XL) [Concomitant]
  6. OMEPRAZOLE (FOR PRILOSEC) [Concomitant]
  7. CLACIUM-CHOLECALCIFEROL DS [Concomitant]
  8. 5-325/METHYLCELLULOSE [Concomitant]
  9. DONEPEZIL (ARICEPT) [Concomitant]
  10. HYDROCHLOROTHIAZDE (FOR HYDRODIURIL) [Concomitant]
  11. LAXATIVE (CITRUCEL) [Concomitant]
  12. AMITRIPTYLINE (FOR ELAVIL) [Concomitant]
  13. NITROGLYCERIN (FOR NITROSTAT) [Concomitant]
  14. THERAPEUTIC MULTIVITAMIN (THERA) [Concomitant]
  15. SYNTHROID [Concomitant]
     Active Substance: LEVOTHYROXINE SODIUM
  16. POTASSIUM CHLORIDE (MICRO-K) [Concomitant]

REACTIONS (1)
  - Renal failure acute [None]

NARRATIVE: CASE EVENT DATE: 20140908
